FAERS Safety Report 4924901-0 (Version None)
Quarter: 2006Q1

REPORT INFORMATION
  Report Type: 
  Country: None (occurrence: None)
  Receive Date: 20060227
  Receipt Date: 20050929
  Transmission Date: 20060701
  Serious: Yes (Hospitalization)
  Sender: FDA-Public Use
  Company Number: US-MERCK-0510USA00648

PATIENT
  Age: 65 Year
  Sex: Male
  Weight: 91 kg

DRUGS (4)
  1. VIOXX [Suspect]
     Indication: ARTHRALGIA
     Route: 048
     Dates: start: 19990801, end: 20031101
  2. VIOXX [Suspect]
     Route: 048
     Dates: start: 20030701
  3. VIOXX [Suspect]
     Route: 048
     Dates: start: 19990801, end: 20031101
  4. VIOXX [Suspect]
     Route: 048
     Dates: start: 20030701

REACTIONS (13)
  - ARTERIOSCLEROSIS CORONARY ARTERY [None]
  - BRONCHITIS [None]
  - CONTUSION [None]
  - FALL [None]
  - FLANK PAIN [None]
  - GOUTY ARTHRITIS [None]
  - IMPETIGO [None]
  - JOINT SPRAIN [None]
  - MYOCARDIAL INFARCTION [None]
  - OBESITY [None]
  - OTITIS EXTERNA [None]
  - ROTATOR CUFF SYNDROME [None]
  - VENTRICULAR EXTRASYSTOLES [None]
